FAERS Safety Report 12398535 (Version 1)
Quarter: 2016Q2

REPORT INFORMATION
  Report Type: Other
  Country: FR (occurrence: FR)
  Receive Date: 20160524
  Receipt Date: 20160524
  Transmission Date: 20160815
  Serious: Yes (Hospitalization, Other)
  Sender: FDA-Public Use
  Company Number: FR-MDT-ADR-2016-00925

PATIENT
  Age: 33 Year
  Sex: Female

DRUGS (1)
  1. BACLOFEN. [Suspect]
     Active Substance: BACLOFEN
     Indication: ALCOHOLISM
     Route: 048

REACTIONS (30)
  - Cholestasis [Recovered/Resolved]
  - Hyperthermia [Recovered/Resolved]
  - Tachypnoea [Recovered/Resolved]
  - Jaundice [Recovered/Resolved]
  - Oliguria [Recovered/Resolved]
  - Gastroenteritis [Recovered/Resolved]
  - Rhabdomyolysis [Recovered/Resolved]
  - Fatigue [Recovered/Resolved]
  - Head titubation [Recovered/Resolved]
  - Disorientation [Recovered/Resolved]
  - Skin discolouration [Recovered/Resolved]
  - Hypochloraemia [Recovered/Resolved]
  - Confusional state [Recovered/Resolved]
  - Hypokalaemia [Recovered/Resolved]
  - Nervous system disorder [Recovered/Resolved]
  - Dehydration [Recovered/Resolved]
  - Echocardiogram abnormal [Recovered/Resolved]
  - Blood ethanol [Recovered/Resolved]
  - Mydriasis [Recovered/Resolved]
  - Drug withdrawal syndrome [Recovered/Resolved]
  - Hyponatraemia [Recovered/Resolved]
  - Tachycardia [Recovered/Resolved]
  - Hypertonia [Recovered/Resolved]
  - Metabolic alkalosis [Recovered/Resolved]
  - Vomiting [Recovered/Resolved]
  - Blood bicarbonate increased [Recovered/Resolved]
  - Blood lactic acid increased [Recovered/Resolved]
  - Hepatocellular injury [Recovered/Resolved]
  - Hyperbilirubinaemia [Recovered/Resolved]
  - Tremor [Recovered/Resolved]
